FAERS Safety Report 20215856 (Version 1)
Quarter: 2021Q4

REPORT INFORMATION
  Report Type: Spontaneous
  Country: NL (occurrence: NL)
  Receive Date: 20211222
  Receipt Date: 20211222
  Transmission Date: 20220303
  Serious: Yes (Other)
  Sender: FDA-Public Use
  Company Number: NL-TEVA-2021-NL-1989595

PATIENT
  Age: 46 Year
  Sex: Female

DRUGS (11)
  1. DOXORUBICIN [Suspect]
     Active Substance: DOXORUBICIN
     Indication: Triple negative breast cancer
     Dosage: RECEIVED FOUR CYCLES; CUMULATIVE DOSE 240MG/M 2
     Route: 065
     Dates: start: 2017, end: 2017
  2. PERINDOPRIL [Suspect]
     Active Substance: PERINDOPRIL
     Indication: Congestive cardiomyopathy
     Route: 065
     Dates: start: 201806
  3. PERINDOPRIL [Suspect]
     Active Substance: PERINDOPRIL
     Dosage: 4 MILLIGRAM DAILY;
     Route: 065
     Dates: start: 201806
  4. CARVEDILOL [Suspect]
     Active Substance: CARVEDILOL
     Indication: Congestive cardiomyopathy
     Route: 065
     Dates: start: 201806
  5. CARVEDILOL [Suspect]
     Active Substance: CARVEDILOL
     Dosage: 12.5 MILLIGRAM DAILY;
     Route: 065
     Dates: start: 201806
  6. FUROSEMIDE [Suspect]
     Active Substance: FUROSEMIDE
     Indication: Congestive cardiomyopathy
     Route: 065
     Dates: start: 201806
  7. EPLERENONE [Suspect]
     Active Substance: EPLERENONE
     Indication: Congestive cardiomyopathy
     Route: 065
     Dates: start: 201806
  8. IVABRADINE [Suspect]
     Active Substance: IVABRADINE
     Indication: Heart rate increased
     Route: 065
     Dates: start: 201806
  9. CYCLOPHOSPHAMIDE [Concomitant]
     Active Substance: CYCLOPHOSPHAMIDE
     Indication: Triple negative breast cancer
     Dosage: RECEIVED FOUR CYCLES
     Route: 065
     Dates: start: 2017, end: 2017
  10. DOCETAXEL [Concomitant]
     Active Substance: DOCETAXEL
     Indication: Triple negative breast cancer
     Route: 065
     Dates: start: 2017, end: 2017
  11. DOCETAXEL [Concomitant]
     Active Substance: DOCETAXEL
     Indication: Neoadjuvant therapy

REACTIONS (4)
  - Congestive cardiomyopathy [Recovering/Resolving]
  - Cardiac failure chronic [Recovering/Resolving]
  - Dizziness [Unknown]
  - Hypotension [Unknown]

NARRATIVE: CASE EVENT DATE: 20180101
